FAERS Safety Report 10887727 (Version 1)
Quarter: 2015Q1

REPORT INFORMATION
  Report Type: Spontaneous
  Country: US (occurrence: US)
  Receive Date: 20150304
  Receipt Date: 20150304
  Transmission Date: 20150721
  Serious: Yes (Other)
  Sender: FDA-Public Use
  Company Number: US-AMGEN-USASP2014039927

PATIENT
  Age: 59 Year
  Sex: Female
  Weight: 86.17 kg

DRUGS (4)
  1. ENBREL [Suspect]
     Active Substance: ETANERCEPT
     Indication: PRODUCT USED FOR UNKNOWN INDICATION
     Dosage: 50 MG, QWK
     Route: 058
     Dates: start: 201306
  2. VENTOLIN [Concomitant]
     Active Substance: ALBUTEROL SULFATE
     Dosage: UNK
  3. FLOVENT [Concomitant]
     Active Substance: FLUTICASONE PROPIONATE
     Dosage: 110 MUG, UNK
  4. METHOTREXATE [Concomitant]
     Active Substance: METHOTREXATE
     Dosage: 2.5 MG, UNK

REACTIONS (9)
  - Paraesthesia [Unknown]
  - Weight increased [Unknown]
  - Injection site swelling [Unknown]
  - Sinusitis [Recovered/Resolved]
  - Anxiety [Unknown]
  - Injection site pain [Unknown]
  - Cough [Unknown]
  - Diabetes mellitus [Unknown]
  - Rhinitis [Unknown]
